FAERS Safety Report 11948240 (Version 1)
Quarter: 2016Q1

REPORT INFORMATION
  Report Type: Report from Study
  Country: US (occurrence: US)
  Receive Date: 20160125
  Receipt Date: 20160125
  Transmission Date: 20160526
  Serious: Yes (Hospitalization)
  Sender: FDA-Public Use
  Company Number: PHHO2014US004153

PATIENT
  Age: 51 Year
  Sex: Female
  Weight: 112.2 kg

DRUGS (5)
  1. PROMETRIUM [Concomitant]
     Active Substance: PROGESTERONE
     Indication: MENOPAUSE
     Dosage: 200 MG, QD
     Route: 065
     Dates: start: 20070305
  2. RELPAX [Concomitant]
     Active Substance: ELETRIPTAN HYDROBROMIDE
     Indication: MIGRAINE
     Dosage: 40 MG, QD
     Route: 065
     Dates: start: 200607
  3. VITAMIN D [Concomitant]
     Active Substance: CHOLECALCIFEROL
     Indication: VITAMIN D DEFICIENCY
     Dosage: 50000 IU (2 WEEK)
     Route: 065
     Dates: start: 20121129
  4. GILENYA [Suspect]
     Active Substance: FINGOLIMOD HYDROCHLORIDE
     Indication: MULTIPLE SCLEROSIS
     Dosage: 0.5 MG, QD
     Route: 048
     Dates: start: 20120716, end: 20151222
  5. ZOCOR [Concomitant]
     Active Substance: SIMVASTATIN
     Indication: HYPERLIPIDAEMIA
     Dosage: 40 MG, QD
     Route: 065
     Dates: start: 20100110

REACTIONS (2)
  - Chest pain [Recovered/Resolved with Sequelae]
  - Chest pain [Recovered/Resolved]

NARRATIVE: CASE EVENT DATE: 20140303
